FAERS Safety Report 4976931-0 (Version None)
Quarter: 2006Q2

REPORT INFORMATION
  Report Type: 
  Country: None (occurrence: None)
  Receive Date: 20060412
  Receipt Date: 20060405
  Transmission Date: 20061013
  Serious: Yes (Other)
  Sender: FDA-Public Use
  Company Number: 2006-00656

PATIENT
  Age: 63 Year
  Sex: Female

DRUGS (4)
  1. ALORA [Suspect]
     Indication: HORMONE REPLACEMENT THERAPY
     Dosage: 1 PATCH, 2/WEEK, TRANSDERMAL
     Route: 062
     Dates: start: 20051001, end: 20060227
  2. MEDROXYPROGESTERONE [Concomitant]
  3. VICOPROFEN [Concomitant]
  4. ATIVAN [Concomitant]

REACTIONS (6)
  - BREAST CANCER FEMALE [None]
  - BREAST DISORDER FEMALE [None]
  - BREAST PAIN [None]
  - BREAST SWELLING [None]
  - BREAST TENDERNESS [None]
  - HYPERTROPHY BREAST [None]
